FAERS Safety Report 20151736 (Version 2)
Quarter: 2022Q1

REPORT INFORMATION
  Report Type: Spontaneous
  Country: US (occurrence: US)
  Receive Date: 20211206
  Receipt Date: 20220223
  Transmission Date: 20220424
  Serious: Yes (Hospitalization)
  Sender: FDA-Public Use
  Company Number: US-FRESENIUS KABI-FK202113376

PATIENT
  Age: 70 Year
  Sex: Male
  Weight: 71.4 kg

DRUGS (58)
  1. FLUDARABINE [Suspect]
     Active Substance: FLUDARABINE PHOSPHATE
     Indication: Chronic lymphocytic leukaemia
     Route: 042
     Dates: start: 20211023, end: 20211025
  2. LISOCABTAGENE MARALEUCEL [Suspect]
     Active Substance: LISOCABTAGENE MARALEUCEL
     Indication: Chronic lymphocytic leukaemia
     Dosage: JCAR017 (LISOCABTAGENE MARALEUCEL) ?100 X 10^6 CAR + T CELLS, SINGLE
     Route: 042
     Dates: start: 20211028, end: 20211028
  3. CYCLOPHOSPHAMIDE [Suspect]
     Active Substance: CYCLOPHOSPHAMIDE
     Indication: Chronic lymphocytic leukaemia
     Route: 042
     Dates: start: 20211023, end: 20211025
  4. VENETOCLAX [Suspect]
     Active Substance: VENETOCLAX
     Indication: Chronic lymphocytic leukaemia
     Dosage: DOSE LEVEL 1: 50 MG DAY 2-30, 100 MG DAY 31-90
     Route: 048
     Dates: start: 20210910, end: 2021
  5. VENETOCLAX [Suspect]
     Active Substance: VENETOCLAX
     Dosage: DOSE LEVEL 1: 50 MG DAY 2-30, 100 MG DAY 31-90?ONGOING
     Route: 048
     Dates: start: 20211029
  6. VENETOCLAX [Suspect]
     Active Substance: VENETOCLAX
     Route: 048
     Dates: start: 20210910, end: 20210916
  7. VENETOCLAX [Suspect]
     Active Substance: VENETOCLAX
     Route: 048
     Dates: start: 20210917, end: 20210923
  8. VENETOCLAX [Suspect]
     Active Substance: VENETOCLAX
     Route: 048
     Dates: start: 20210924, end: 20211021
  9. VENETOCLAX [Suspect]
     Active Substance: VENETOCLAX
     Route: 048
     Dates: start: 20211029, end: 20211101
  10. VENETOCLAX [Suspect]
     Active Substance: VENETOCLAX
     Route: 048
     Dates: start: 20210711, end: 20211129
  11. VENETOCLAX [Suspect]
     Active Substance: VENETOCLAX
     Route: 048
     Dates: start: 20211130, end: 20220115
  12. MICAFUNGIN [Concomitant]
     Active Substance: MICAFUNGIN
     Indication: Infection prophylaxis
     Dosage: NOT PROVIDED
     Route: 042
     Dates: start: 20211029, end: 20211111
  13. TOCILIZUMAB [Concomitant]
     Active Substance: TOCILIZUMAB
     Indication: Cytokine release syndrome
     Dosage: NOT PROVIDED
     Route: 042
     Dates: start: 20211031, end: 20211031
  14. TOCILIZUMAB [Concomitant]
     Active Substance: TOCILIZUMAB
     Dosage: NOT PROVIDED
     Route: 042
     Dates: start: 20211102, end: 20211103
  15. ACETAMINOPHEN [Concomitant]
     Active Substance: ACETAMINOPHEN
     Indication: Cytokine release syndrome
     Dosage: NOT PROVIDED
     Route: 042
     Dates: start: 20211030, end: 20211031
  16. ACETAMINOPHEN [Concomitant]
     Active Substance: ACETAMINOPHEN
     Indication: Pyrexia
     Dosage: NOT PROVIDED
     Route: 042
     Dates: start: 20211103, end: 20211104
  17. ACETAMINOPHEN [Concomitant]
     Active Substance: ACETAMINOPHEN
     Indication: Headache
     Dosage: NOT PROVIDED
     Route: 048
     Dates: start: 20211029, end: 20211103
  18. ACETAMINOPHEN [Concomitant]
     Active Substance: ACETAMINOPHEN
     Indication: Premedication
     Dosage: NOT PROVIDED
     Route: 048
     Dates: start: 20211108, end: 20211108
  19. ALLOPURINOL [Concomitant]
     Active Substance: ALLOPURINOL
     Indication: Prophylaxis
     Dosage: NOT PROVIDED
     Route: 048
     Dates: start: 20211023
  20. DIPHENHYDRAMINE HYDROCHLORIDE [Concomitant]
     Active Substance: DIPHENHYDRAMINE HYDROCHLORIDE
     Indication: Premedication
     Dosage: NOT PROVIDED
     Route: 048
     Dates: start: 20211108, end: 20211108
  21. DEXAMETHASONE [Concomitant]
     Active Substance: DEXAMETHASONE
     Indication: Cytokine release syndrome
     Dosage: NOT PROVIDED
     Route: 042
     Dates: start: 20211031, end: 20211031
  22. DEXAMETHASONE [Concomitant]
     Active Substance: DEXAMETHASONE
     Indication: Confusional state
     Dosage: NOT PROVIDED
     Route: 042
     Dates: start: 20211102, end: 20211102
  23. DEXAMETHASONE [Concomitant]
     Active Substance: DEXAMETHASONE
     Indication: Dysgraphia
     Dosage: NOT PROVIDED
     Route: 042
     Dates: start: 20211103, end: 20211107
  24. DEXAMETHASONE [Concomitant]
     Active Substance: DEXAMETHASONE
     Indication: Aphasia
     Dosage: TAPERING DOWN, NOT PROVIDED
     Route: 042
     Dates: start: 20211107, end: 20211108
  25. DEXAMETHASONE [Concomitant]
     Active Substance: DEXAMETHASONE
     Indication: Neurotoxicity
     Dosage: TAPERING DOWN, NOT PROVIDED
     Route: 042
     Dates: start: 20211108, end: 20211110
  26. DEXAMETHASONE [Concomitant]
     Active Substance: DEXAMETHASONE
     Dosage: TAPERING DOWN, NOT PROVIDED
     Route: 042
     Dates: start: 20211111, end: 20211111
  27. CEFEPIME [Concomitant]
     Active Substance: CEFEPIME HYDROCHLORIDE
     Indication: Infection prophylaxis
     Dosage: NOT PROVIDED
     Route: 042
     Dates: start: 20211029, end: 20211031
  28. CEFEPIME [Concomitant]
     Active Substance: CEFEPIME HYDROCHLORIDE
     Dosage: NOT PROVIDED
     Route: 042
     Dates: start: 20211109, end: 20211111
  29. MAGNESIUM HYDROXIDE/SIMETICONE/ALUMINIUM HYDROXIDE [Concomitant]
     Indication: Dyspepsia
     Dosage: ALUMINUM-MAGNESIUM HYDROXIDE-SIMETHICONE (MAGNESIUM HYDROXIDE, SIMETICONE, ALUMINIUM HYDROXIDE)?NOT
     Route: 048
     Dates: start: 20211107, end: 20211107
  30. BACLOFEN [Concomitant]
     Active Substance: BACLOFEN
     Indication: Hiccups
     Dosage: NOT PROVIDED
     Route: 048
     Dates: start: 20211106, end: 20211109
  31. CAFFEINE/BUTALBITAL/PARACETAMOL [Concomitant]
     Indication: Headache
     Dosage: NOT PROVIDED
     Route: 048
     Dates: start: 20211031, end: 20211031
  32. CAFFEINE/BUTALBITAL/PARACETAMOL [Concomitant]
     Dosage: NOT PROVIDED
     Route: 048
     Dates: start: 20211102, end: 20211102
  33. CALCIUM GLUCONATE [Concomitant]
     Active Substance: CALCIUM GLUCONATE
     Indication: Hypocalcaemia
     Dosage: NOT PROVIDED
     Route: 042
     Dates: start: 20211030, end: 20211104
  34. DOCUSATE [Concomitant]
     Active Substance: DOCUSATE
     Indication: Constipation
     Route: 048
     Dates: start: 20211023, end: 20211111
  35. LEVETIRACETAM [Concomitant]
     Active Substance: LEVETIRACETAM
     Indication: Seizure prophylaxis
     Dosage: NOT PROVIDED
     Route: 042
     Dates: start: 20211030, end: 20211109
  36. LEVETIRACETAM [Concomitant]
     Active Substance: LEVETIRACETAM
     Dosage: NOT PROVIDED
     Route: 048
     Dates: start: 20211110
  37. LORATADINE [Concomitant]
     Active Substance: LORATADINE
     Indication: Nasal congestion
     Dosage: NOT PROVIDED
     Route: 048
     Dates: start: 20211031, end: 20211103
  38. LORATADINE [Concomitant]
     Active Substance: LORATADINE
     Dosage: NOT PROVIDED
     Route: 048
     Dates: start: 20211106, end: 20211112
  39. FLUMAZENIL [Concomitant]
     Active Substance: FLUMAZENIL
     Indication: Somnolence
     Dosage: NOT PROVIDED
     Route: 042
     Dates: start: 20211103, end: 20211103
  40. LORAZEPAM [Concomitant]
     Active Substance: LORAZEPAM
     Indication: Anxiety
     Dosage: NOT PROVIDED
     Route: 042
     Dates: start: 20211106, end: 20211106
  41. MEROPENEM [Concomitant]
     Active Substance: MEROPENEM
     Indication: Infection prophylaxis
     Dosage: NOT PROVIDED
     Route: 042
     Dates: start: 20211031, end: 20211108
  42. NYSTATIN [Concomitant]
     Active Substance: NYSTATIN
     Indication: Infection prophylaxis
     Dosage: NOT PROVIDED
     Route: 048
     Dates: start: 20211022, end: 20211111
  43. POTASSIUM PHOSPHATE, DIBASIC [Concomitant]
     Active Substance: POTASSIUM PHOSPHATE, DIBASIC
     Indication: Hypophosphataemia
     Dosage: NOT PROVIDED
     Route: 042
     Dates: start: 20211102, end: 20211103
  44. POTASSIUM PHOSPHATE, DIBASIC [Concomitant]
     Active Substance: POTASSIUM PHOSPHATE, DIBASIC
     Dosage: NOT PROVIDED
     Route: 042
     Dates: start: 20211105, end: 20211107
  45. MELATONIN [Concomitant]
     Active Substance: MELATONIN
     Indication: Insomnia
     Dosage: NOT PROVIDED
     Route: 048
     Dates: start: 20211030, end: 20211031
  46. MELATONIN [Concomitant]
     Active Substance: MELATONIN
     Dosage: NOT PROVIDED
     Route: 048
     Dates: start: 20211105, end: 20211105
  47. PANTOPRAZOLE [Concomitant]
     Active Substance: PANTOPRAZOLE
     Indication: Gastrointestinal disorder prophylaxis
     Dosage: NOT PROVIDED
     Route: 048
     Dates: start: 20211023, end: 20211102
  48. PANTOPRAZOLE [Concomitant]
     Active Substance: PANTOPRAZOLE
     Dosage: NOT PROVIDED
     Route: 042
     Dates: start: 20211103, end: 20211104
  49. PANTOPRAZOLE [Concomitant]
     Active Substance: PANTOPRAZOLE
     Dosage: NOT PROVIDED
     Route: 048
     Dates: start: 20211107, end: 20211112
  50. POLYETHYLENE GLYCOL 3350 [Concomitant]
     Active Substance: POLYETHYLENE GLYCOL 3350
     Indication: Constipation
     Dosage: NOT PROVIDED
     Route: 048
     Dates: start: 20211023, end: 20211108
  51. SIMETHICONE (DIMETHICONE) [Concomitant]
     Active Substance: DIMETHICONE
     Indication: Dyspepsia
     Dosage: NOT PROVIDED
     Route: 048
     Dates: start: 20211107, end: 20211107
  52. TERAZOSIN [Concomitant]
     Active Substance: TERAZOSIN HYDROCHLORIDE
     Indication: Benign prostatic hyperplasia
     Dosage: NOT PROVIDED
     Route: 048
     Dates: start: 20211024, end: 20211102
  53. TERAZOSIN [Concomitant]
     Active Substance: TERAZOSIN HYDROCHLORIDE
     Dosage: NOT PROVIDED
     Route: 048
     Dates: start: 20211105, end: 20211110
  54. VALACYCLOVIR HYDROCHLORIDE [Concomitant]
     Active Substance: VALACYCLOVIR HYDROCHLORIDE
     Indication: Infection prophylaxis
     Dosage: NOT PROVIDED
     Route: 048
     Dates: start: 20211023, end: 20211103
  55. VALACYCLOVIR HYDROCHLORIDE [Concomitant]
     Active Substance: VALACYCLOVIR HYDROCHLORIDE
     Dosage: NOT PROVIDED
     Route: 048
     Dates: start: 20211105, end: 20211112
  56. TEMAZEPAM [Concomitant]
     Active Substance: TEMAZEPAM
     Indication: Insomnia
     Dosage: NOT PROVIDED
     Route: 048
     Dates: start: 20211022, end: 20211030
  57. TEMAZEPAM [Concomitant]
     Active Substance: TEMAZEPAM
     Dosage: NOT PROVIDED
     Route: 048
     Dates: start: 20211101, end: 20211102
  58. TEMAZEPAM [Concomitant]
     Active Substance: TEMAZEPAM
     Dosage: NOT PROVIDED
     Route: 048
     Dates: start: 20211107, end: 20211111

REACTIONS (1)
  - Fatigue [Recovered/Resolved]

NARRATIVE: CASE EVENT DATE: 20211113
